FAERS Safety Report 10452328 (Version 1)
Quarter: 2014Q3

REPORT INFORMATION
  Report Type: Spontaneous
  Country: JP (occurrence: JP)
  Receive Date: 20140915
  Receipt Date: 20140915
  Transmission Date: 20150326
  Serious: No
  Sender: FDA-Public Use
  Company Number: PHHY2012JP136191

PATIENT
  Sex: Male

DRUGS (4)
  1. TASIGNA [Suspect]
     Active Substance: NILOTINIB
     Dosage: UNK UKN, UNK
  2. TASIGNA [Suspect]
     Active Substance: NILOTINIB
     Dosage: 600 MG
  3. TASIGNA [Suspect]
     Active Substance: NILOTINIB
     Dosage: 400 MG
  4. DASATINIB [Suspect]
     Active Substance: DASATINIB
     Dosage: UNK UKN, UNK

REACTIONS (2)
  - Thrombocytopenia [Unknown]
  - Arthralgia [Unknown]
